FAERS Safety Report 8246494-5 (Version None)
Quarter: 2012Q1

REPORT INFORMATION
  Report Type: 
  Country: None (occurrence: None)
  Receive Date: 20120330
  Receipt Date: 20120321
  Transmission Date: 20120608
  Serious: Yes (Hospitalization)
  Sender: FDA-Public Use
  Company Number: CA-SANOFI-AVENTIS-2010SA051832

PATIENT
  Age: 70 Year
  Sex: Female
  Weight: 68 kg

DRUGS (12)
  1. LASIX [Concomitant]
     Route: 048
  2. ALTACE [Concomitant]
     Route: 048
  3. DILTIAZEM HCL [Concomitant]
     Route: 048
  4. METOPROLOL SUCCINATE [Concomitant]
     Route: 048
  5. WARFARIN SODIUM [Concomitant]
     Route: 048
  6. ATORVASTATIN [Concomitant]
     Route: 048
  7. COLACE [Concomitant]
     Route: 048
  8. ASPIRIN [Concomitant]
     Route: 048
  9. BLINDED THERAPY [Suspect]
     Route: 048
     Dates: start: 20100818, end: 20100822
  10. DRONEDARONE HCL [Suspect]
     Route: 048
     Dates: start: 20100723, end: 20100827
  11. LEVOTHYROXINE SODIUM [Concomitant]
     Route: 048
  12. SLOW-K [Concomitant]
     Dosage: DOSE:1 UNIT(S)
     Route: 048

REACTIONS (2)
  - SYNCOPE [None]
  - CARDIAC FAILURE CONGESTIVE [None]
